FAERS Safety Report 11539137 (Version 4)
Quarter: 2018Q1

REPORT INFORMATION
  Report Type: Report from Study
  Country: US (occurrence: US)
  Receive Date: 20150923
  Receipt Date: 20180302
  Transmission Date: 20180508
  Serious: Yes (Other)
  Sender: FDA-Public Use
  Company Number: US-ROCHE-1540057

PATIENT
  Age: 14 Year
  Sex: Female
  Weight: 35 kg

DRUGS (11)
  1. NUTROPIN AQ [Suspect]
     Active Substance: SOMATROPIN
     Dosage: NUSPIN 10
     Route: 058
  2. OXANDROLONE. [Concomitant]
     Active Substance: OXANDROLONE
     Route: 048
  3. KETOCONAZOLE. [Concomitant]
     Active Substance: KETOCONAZOLE
     Route: 061
  4. NUTROPIN AQ [Suspect]
     Active Substance: SOMATROPIN
     Indication: TURNER^S SYNDROME
     Route: 058
     Dates: start: 20150214
  5. NUTROPIN AQ [Suspect]
     Active Substance: SOMATROPIN
     Route: 058
     Dates: start: 201508
  6. NUTROPIN AQ [Suspect]
     Active Substance: SOMATROPIN
     Route: 058
  7. RETIN-A [Concomitant]
     Active Substance: TRETINOIN
     Dosage: AT BEDTIME
     Route: 061
  8. ESTRACE (UNITED STATES) [Concomitant]
     Route: 048
  9. NUTROPIN AQ [Suspect]
     Active Substance: SOMATROPIN
     Route: 058
  10. ALDARA [Concomitant]
     Active Substance: IMIQUIMOD
     Route: 065
  11. AZATHIOPRINE. [Concomitant]
     Active Substance: AZATHIOPRINE
     Route: 048

REACTIONS (8)
  - Medication error [Unknown]
  - Ankle fracture [Recovered/Resolved]
  - Heart rate increased [Unknown]
  - Hand fracture [Unknown]
  - Growth retardation [Unknown]
  - Foot fracture [Unknown]
  - C-reactive protein [Unknown]
  - Spinal fracture [Unknown]

NARRATIVE: CASE EVENT DATE: 20150817
